FAERS Safety Report 4620267-4 (Version None)
Quarter: 2005Q1

REPORT INFORMATION
  Report Type: 
  Country: None (occurrence: None)
  Receive Date: 20050324
  Receipt Date: 20050304
  Transmission Date: 20050727
  Serious: Yes (Other)
  Sender: FDA-Public Use
  Company Number: JP_050306016

PATIENT
  Age: 78 Year
  Sex: Male

DRUGS (1)
  1. GEMZAR [Suspect]
     Indication: PANCREATIC CARCINOMA
     Dates: start: 20040201, end: 20040801

REACTIONS (2)
  - DISSEMINATED INTRAVASCULAR COAGULATION [None]
  - RENAL FAILURE [None]
